FAERS Safety Report 4630224-X (Version None)
Quarter: 2005Q2

REPORT INFORMATION
  Report Type: 
  Country: None (occurrence: None)
  Receive Date: 20050406
  Receipt Date: 20050317
  Transmission Date: 20051028
  Serious: Yes (Hospitalization)
  Sender: FDA-Public Use
  Company Number: 800307

PATIENT
  Age: 79 Year
  Sex: Male
  Weight: 74.9 kg

DRUGS (1)
  1. DIANEAL PD-1 [Suspect]
     Indication: PERITONEAL DIALYSIS
     Dosage: 2.5 L;INTRAPERITONEAL
     Route: 033

REACTIONS (2)
  - MEDICATION ERROR [None]
  - PERITONITIS [None]
